FAERS Safety Report 17405927 (Version 2)
Quarter: 2020Q2

REPORT INFORMATION
  Report Type: Spontaneous
  Country: DE (occurrence: DE)
  Receive Date: 20200212
  Receipt Date: 20200421
  Transmission Date: 20200713
  Serious: Yes (Other)
  Sender: FDA-Public Use
  Company Number: DE-009507513-2002DEU003778

PATIENT
  Sex: Male
  Weight: 136 kg

DRUGS (11)
  1. CRESTOR [Concomitant]
     Active Substance: ROSUVASTATIN CALCIUM
     Indication: HYPERCHOLESTEROLAEMIA
     Dosage: 2X5MG IN THE MORNING
     Dates: start: 2018
  2. ANTRA MUPS [Concomitant]
     Active Substance: OMEPRAZOLE MAGNESIUM
     Indication: GASTRIC ULCER
     Dosage: 2 IN THE MORNING
     Dates: start: 1999
  3. TOUJEO [Concomitant]
     Active Substance: INSULIN GLARGINE
     Indication: DIABETES MELLITUS
     Dosage: 40 IN THE EVENING ONCE DAILY
     Dates: start: 2019
  4. ANTRA MUPS [Concomitant]
     Active Substance: OMEPRAZOLE MAGNESIUM
     Indication: HYPERTENSION
  5. THYROXIN [Concomitant]
     Active Substance: LEVOTHYROXINE
     Indication: GENERAL SYMPTOM
     Dosage: 1.5 IN THE MORNING
     Dates: start: 2010
  6. GODAMED [Concomitant]
     Active Substance: ASPIRIN
     Indication: CORONARY ARTERY DISEASE
     Dosage: TWO IN THE MORNING
     Dates: start: 2018
  7. APROVEL [Concomitant]
     Active Substance: IRBESARTAN
     Indication: HYPERTENSION
     Dosage: 1 IN THE MORNING
     Dates: start: 2000
  8. HUMALOG [Concomitant]
     Active Substance: INSULIN LISPRO
     Indication: DIABETES MELLITUS
     Dosage: 50 DOSAGE FORM, QAM
     Route: 058
     Dates: start: 2019
  9. JANUVIA [Suspect]
     Active Substance: SITAGLIPTIN PHOSPHATE
     Indication: DIABETES MELLITUS
     Dosage: 2 TABLETS A DAY (2X50 MG), IN THE MORNING
     Route: 048
     Dates: start: 2019
  10. HUMALOG [Concomitant]
     Active Substance: INSULIN LISPRO
     Dosage: 60 DOSAGE FORM, IN NOON
     Route: 058
     Dates: start: 2019
  11. HUMALOG [Concomitant]
     Active Substance: INSULIN LISPRO
     Dosage: 50 DOSAGE FORM, QPM
     Route: 058
     Dates: start: 2019

REACTIONS (3)
  - Diplegia [Recovered/Resolved]
  - Diplegia [Recovered/Resolved]
  - Paralysis [Recovered/Resolved]

NARRATIVE: CASE EVENT DATE: 20190215
